FAERS Safety Report 22352786 (Version 2)
Quarter: 2023Q2

REPORT INFORMATION
  Report Type: Spontaneous
  Country: LK (occurrence: LK)
  Receive Date: 20230523
  Receipt Date: 20230530
  Transmission Date: 20230722
  Serious: Yes (Hospitalization, Other)
  Sender: FDA-Public Use
  Company Number: None

PATIENT
  Age: 73 Year
  Sex: Male

DRUGS (2)
  1. TAMSULOSIN HYDROCHLORIDE [Suspect]
     Active Substance: TAMSULOSIN HYDROCHLORIDE
     Indication: Prostatic obstruction
     Dosage: UNK
     Route: 065
  2. NEOSTIGMINE [Suspect]
     Active Substance: NEOSTIGMINE
     Indication: Impaired gastric emptying
     Dosage: 0.4 MILLIGRAM (EVERY 1 HOUR) (FOR 4 H AND REPEATED AFTER 6 H FOR TWO DAYS)
     Route: 042

REACTIONS (1)
  - Urinary retention [Unknown]
